FAERS Safety Report 6179777-3 (Version None)
Quarter: 2009Q2

REPORT INFORMATION
  Report Type: 
  Country: None (occurrence: None)
  Receive Date: 20090505
  Receipt Date: 20090428
  Transmission Date: 20091009
  Serious: Yes (Life-Threatening, Other)
  Sender: FDA-Public Use
  Company Number: JP-PFIZER INC-2009207059

PATIENT

DRUGS (4)
  1. ATARAX [Suspect]
     Dosage: 25 MG, SINGLE
     Route: 051
     Dates: start: 20050704, end: 20050704
  2. EUGLUCON [Concomitant]
     Route: 048
  3. BASEN [Concomitant]
     Route: 048
  4. SIMVASTATIN [Concomitant]
     Route: 048

REACTIONS (3)
  - LOSS OF CONSCIOUSNESS [None]
  - SHOCK [None]
  - URTICARIA [None]
